FAERS Safety Report 8431401-2 (Version None)
Quarter: 2012Q2

REPORT INFORMATION
  Report Type: 
  Country: None (occurrence: None)
  Receive Date: 20120613
  Receipt Date: 20120529
  Transmission Date: 20120825
  Serious: No
  Sender: FDA-Public Use
  Company Number: US-PFIZER INC-2012138137

PATIENT
  Age: 64 Year
  Sex: Female
  Weight: 59.86 kg

DRUGS (2)
  1. COLLAGENASE CLOSTRIDIUM HISTOLYTICUM [Suspect]
     Indication: DUPUYTREN'S CONTRACTURE
     Dosage: UNK, 1 IN 1 D
     Route: 026
     Dates: start: 20120523, end: 20120523
  2. LIDOCAINE HYDROCHLORIDE [Suspect]
     Dosage: UNK, 2 IN 1 D
     Dates: start: 20120524, end: 20120524

REACTIONS (4)
  - PROCEDURAL PAIN [None]
  - CONTUSION [None]
  - OEDEMA PERIPHERAL [None]
  - HYPOAESTHESIA [None]
